FAERS Safety Report 14616257 (Version 2)
Quarter: 2018Q1

REPORT INFORMATION
  Report Type: Spontaneous
  Country: GB (occurrence: GB)
  Receive Date: 20180309
  Receipt Date: 20180320
  Transmission Date: 20180509
  Serious: Yes (Other)
  Sender: FDA-Public Use
  Company Number: GB-SUN PHARMACEUTICAL INDUSTRIES LTD-2018RR-165577

PATIENT
  Age: 30 Year
  Sex: Male

DRUGS (2)
  1. BROMOCRIPTINE [Suspect]
     Active Substance: BROMOCRIPTINE
     Indication: ACROMEGALY
     Dosage: UNK
     Route: 065
  2. OCTREOTIDE. [Suspect]
     Active Substance: OCTREOTIDE
     Indication: ACROMEGALY
     Dosage: 50 ?G, TID
     Route: 058

REACTIONS (4)
  - Drug ineffective [Recovered/Resolved]
  - Drug intolerance [Unknown]
  - Headache [Unknown]
  - Gastrointestinal disorder [Unknown]
